FAERS Safety Report 23657898 (Version 1)
Quarter: 2024Q1

REPORT INFORMATION
  Report Type: Spontaneous
  Country: US (occurrence: None)
  Receive Date: 20240320
  Receipt Date: 20240320
  Transmission Date: 20240410
  Serious: Yes (Other)
  Sender: FDA-Public Use
  Company Number: None

PATIENT
  Age: 83 Year
  Sex: Female
  Weight: 46.35 kg

DRUGS (13)
  1. GLATOPA [Suspect]
     Active Substance: GLATIRAMER ACETATE
     Indication: Multiple sclerosis
     Dosage: OTHER QUANTITY : 1 INJECTION(S);?OTHER FREQUENCY : 3 TIMES WEEKLY;?
     Route: 058
     Dates: start: 20201216, end: 20240319
  2. COPAXONE [Suspect]
     Active Substance: GLATIRAMER ACETATE
  3. FOSAMAX [Concomitant]
     Active Substance: ALENDRONATE SODIUM
  4. HYDROCHLOROTHIAZIDE [Concomitant]
     Active Substance: HYDROCHLOROTHIAZIDE
  5. POTASSIUM CHLORIDE [Concomitant]
     Active Substance: POTASSIUM CHLORIDE
  6. LIPITOR [Concomitant]
     Active Substance: ATORVASTATIN CALCIUM
  7. MINERALS\VITAMINS [Concomitant]
     Active Substance: MINERALS\VITAMINS
  8. VITAMIN D3 [Concomitant]
     Active Substance: CHOLECALCIFEROL
  9. Viactiv calcium [Concomitant]
  10. LORATADINE [Concomitant]
     Active Substance: LORATADINE
  11. TYLENOL [Concomitant]
     Active Substance: ACETAMINOPHEN
  12. EYE LUBRICANT [Concomitant]
     Active Substance: POLYETHYLENE GLYCOL 400\PROPYLENE GLYCOL
  13. oral lubricant [Concomitant]

REACTIONS (2)
  - Defaecation urgency [None]
  - Therapy cessation [None]

NARRATIVE: CASE EVENT DATE: 20240319
